FAERS Safety Report 21270680 (Version 1)
Quarter: 2022Q3

REPORT INFORMATION
  Report Type: Spontaneous
  Country: FR (occurrence: FR)
  Receive Date: 20220830
  Receipt Date: 20220830
  Transmission Date: 20221027
  Serious: Yes (Other)
  Sender: FDA-Public Use
  Company Number: None

PATIENT
  Age: 81 Year
  Sex: Male
  Weight: 68 kg

DRUGS (2)
  1. SIVEXTRO [Suspect]
     Active Substance: TEDIZOLID PHOSPHATE
     Indication: Bacterial infection
     Dosage: 200 MILLIGRAM
     Route: 048
     Dates: start: 20220721, end: 20220728
  2. LINEZOLID [Suspect]
     Active Substance: LINEZOLID
     Indication: Bacterial infection
     Dosage: 600MG 2*/DAY
     Route: 048
     Dates: start: 20220709, end: 20220721

REACTIONS (1)
  - Bicytopenia [Recovered/Resolved]

NARRATIVE: CASE EVENT DATE: 20220721
